FAERS Safety Report 5239533-7 (Version None)
Quarter: 2007Q1

REPORT INFORMATION
  Report Type: 
  Country: None (occurrence: None)
  Receive Date: 20070212
  Receipt Date: 20070130
  Transmission Date: 20070707
  Serious: Yes (Hospitalization)
  Sender: FDA-Public Use
  Company Number: 15596

PATIENT
  Age: 75 Year
  Sex: Female

DRUGS (10)
  1. DACARBAZINE [Suspect]
     Indication: MALIGNANT MELANOMA STAGE IV
     Dosage: 1660 MG IV
     Route: 042
     Dates: start: 20070123, end: 20070123
  2. DACARBAZINE [Suspect]
     Indication: MALIGNANT MELANOMA STAGE IV
     Dosage: 1660 MG IV
     Route: 042
     Dates: start: 20070104, end: 20070104
  3. BOSENTAN 500 MG BID OR PLACEBO (CODE NOT BROKEN) [Suspect]
     Indication: MALIGNANT MELANOMA STAGE IV
     Dosage: 500 MG BID PO
     Route: 048
     Dates: start: 20070105
  4. DIAZEPAM [Concomitant]
  5. ESOMEPRAZOLE MAGNESIUM [Concomitant]
  6. IRBESARTAN [Concomitant]
  7. VENLAFAXINE HCL [Concomitant]
  8. MAXIDEX [Concomitant]
  9. ZYRTEC [Concomitant]
  10. BECONASE [Concomitant]

REACTIONS (2)
  - BURNING SENSATION [None]
  - SYNCOPE [None]
